FAERS Safety Report 25222024 (Version 1)
Quarter: 2025Q2

REPORT INFORMATION
  Report Type: Spontaneous
  Country: FR (occurrence: FR)
  Receive Date: 20250421
  Receipt Date: 20250421
  Transmission Date: 20250717
  Serious: Yes (Other)
  Sender: MYLAN
  Company Number: None

PATIENT
  Age: 23 Year
  Sex: Male

DRUGS (12)
  1. TAMOXIFEN [Suspect]
     Active Substance: TAMOXIFEN
     Indication: Breast cancer
     Dates: start: 20250302
  2. TAMOXIFEN [Suspect]
     Active Substance: TAMOXIFEN
     Route: 048
     Dates: start: 20250302
  3. TAMOXIFEN [Suspect]
     Active Substance: TAMOXIFEN
     Route: 048
     Dates: start: 20250302
  4. TAMOXIFEN [Suspect]
     Active Substance: TAMOXIFEN
     Dates: start: 20250302
  5. BILASTINE [None]
     Active Substance: BILASTINE
     Indication: Hypersensitivity
  6. BILASTINE [None]
     Active Substance: BILASTINE
     Route: 048
  7. BILASTINE [4]
     Active Substance: BILASTINE
     Route: 048
  8. BILASTINE [4]
     Active Substance: BILASTINE
  9. NEFOPAM HYDROCHLORIDE [Concomitant]
     Active Substance: NEFOPAM HYDROCHLORIDE
     Indication: Pain management
     Dosage: 1 DOSAGE FORM, QD
     Dates: start: 20250306, end: 20250307
  10. NEFOPAM HYDROCHLORIDE [Concomitant]
     Active Substance: NEFOPAM HYDROCHLORIDE
     Dosage: 1 DOSAGE FORM, QD
     Route: 048
     Dates: start: 20250306, end: 20250307
  11. NEFOPAM HYDROCHLORIDE [Concomitant]
     Active Substance: NEFOPAM HYDROCHLORIDE
     Dosage: 1 DOSAGE FORM, QD
     Route: 048
     Dates: start: 20250306, end: 20250307
  12. NEFOPAM HYDROCHLORIDE [Concomitant]
     Active Substance: NEFOPAM HYDROCHLORIDE
     Dosage: 1 DOSAGE FORM, QD
     Dates: start: 20250306, end: 20250307

REACTIONS (5)
  - Abdominal pain [Recovered/Resolved]
  - Nausea [Recovered/Resolved]
  - Myalgia [Recovered/Resolved]
  - Wrong product administered [Recovered/Resolved]
  - Asthenia [Recovered/Resolved]

NARRATIVE: CASE EVENT DATE: 20250302
